FAERS Safety Report 4845448-6 (Version None)
Quarter: 2005Q4

REPORT INFORMATION
  Report Type: 
  Country: None (occurrence: None)
  Receive Date: 20051129
  Receipt Date: 20050825
  Transmission Date: 20060501
  Serious: Yes (Hospitalization)
  Sender: FDA-Public Use
  Company Number: 2005-132016-NL

PATIENT
  Age: 75 Year
  Sex: Male

DRUGS (4)
  1. VECURONIUM BROMIDE [Suspect]
     Indication: RESPIRATION ABNORMAL
     Dosage: DF
  2. GABEXATE MESILATE [Concomitant]
  3. OMEPRAZOLE [Concomitant]
  4. ANTIBIOTIC [Concomitant]

REACTIONS (3)
  - ASTHENIA [None]
  - BLOOD CREATINE PHOSPHOKINASE INCREASED [None]
  - MUSCULAR WEAKNESS [None]
